FAERS Safety Report 24063317 (Version 1)
Quarter: 2024Q3

REPORT INFORMATION
  Report Type: Spontaneous
  Country: US (occurrence: US)
  Receive Date: 20240709
  Receipt Date: 20240709
  Transmission Date: 20241017
  Serious: No
  Sender: RECORDATI
  Company Number: US-RECORDATI RARE DISEASE INC.-2023008278

PATIENT

DRUGS (2)
  1. PANHEMATIN [Suspect]
     Active Substance: HEMIN
     Indication: Porphyria acute
     Dosage: 2 MILLIGRAM/KILOGRAM
     Route: 042
  2. PANHEMATIN [Suspect]
     Active Substance: HEMIN
     Dosage: 4 MILLIGRAM/KILOGRAM (2 VIALS, 4TH INFUSION)
     Route: 042

REACTIONS (2)
  - Muscle twitching [Recovered/Resolved]
  - Paraesthesia oral [Recovered/Resolved]

NARRATIVE: CASE EVENT DATE: 20231111
